FAERS Safety Report 8307926-7 (Version None)
Quarter: 2012Q2

REPORT INFORMATION
  Report Type: 
  Country: None (occurrence: None)
  Receive Date: 20120424
  Receipt Date: 20120420
  Transmission Date: 20120825
  Serious: Yes (Hospitalization, Congenital Anomaly)
  Sender: FDA-Public Use
  Company Number: US-GLAXOSMITHKLINE-A0905844A

PATIENT
  Sex: Male

DRUGS (7)
  1. PROZAC [Concomitant]
     Route: 064
  2. PAROXETINE HCL [Suspect]
     Indication: MAJOR DEPRESSION
     Dosage: 30MG TWICE PER DAY
     Route: 064
     Dates: start: 20060101, end: 20070101
  3. ALBUTEROL [Concomitant]
     Route: 064
  4. RESTORIL [Concomitant]
     Dosage: 15MG AT NIGHT
     Route: 064
  5. PAXIL [Suspect]
     Indication: MAJOR DEPRESSION
     Dosage: 30MG UNKNOWN
     Route: 064
     Dates: start: 20060101, end: 20090101
  6. MULTI-VITAMINS [Concomitant]
     Route: 064
  7. FLUOXETINE [Concomitant]
     Indication: MAJOR DEPRESSION
     Dosage: 20MG PER DAY
     Route: 064

REACTIONS (8)
  - ATRIAL SEPTAL DEFECT [None]
  - VENTRICULAR EXTRASYSTOLES [None]
  - VENTRICULAR SEPTAL DEFECT [None]
  - ARTERIAL DISORDER [None]
  - CARDIAC MURMUR [None]
  - FOETAL EXPOSURE DURING PREGNANCY [None]
  - CONGENITAL AORTIC ANOMALY [None]
  - ARRHYTHMIA [None]
